FAERS Safety Report 9018627 (Version 1)
Quarter: 2013Q1

REPORT INFORMATION
  Report Type: Spontaneous
  Country: BR (occurrence: BR)
  Receive Date: 20130118
  Receipt Date: 20130118
  Transmission Date: 20140127
  Serious: Yes (Hospitalization, Other)
  Sender: FDA-Public Use
  Company Number: BR-PFIZER INC-2013020316

PATIENT
  Age: 62 Year
  Sex: Female
  Weight: 65 kg

DRUGS (7)
  1. LYRICA [Suspect]
     Indication: CARDIOVASCULAR DISORDER
     Dosage: 1 CAPSULE (75 MG), 1X/DAY
     Route: 048
     Dates: start: 20120808
  2. LYRICA [Suspect]
     Indication: CARPAL TUNNEL DECOMPRESSION
  3. OMEPRAZOL [Concomitant]
     Indication: GASTRITIS
     Dosage: 1 CAPSULE (UNSPECIFIED DOSE) TWICE A DAY
     Dates: start: 2008, end: 2008
  4. RAMIPRIL [Concomitant]
  5. MESACOL [Concomitant]
     Dosage: 1200 (UNSPECIFIED UNIT), MONTHLY
  6. VASLIP [Concomitant]
  7. GLIFAGE [Concomitant]

REACTIONS (2)
  - Carpal tunnel syndrome [Unknown]
  - Off label use [Not Recovered/Not Resolved]
